FAERS Safety Report 19498753 (Version 4)
Quarter: 2021Q3

REPORT INFORMATION
  Report Type: Report from Study
  Country: US (occurrence: US)
  Receive Date: 20210706
  Receipt Date: 20210716
  Transmission Date: 20211014
  Serious: No
  Sender: FDA-Public Use
  Company Number: NVSC2021US141088

PATIENT
  Sex: Female

DRUGS (2)
  1. KESIMPTA [Suspect]
     Active Substance: OFATUMUMAB
     Indication: HEART RATE INCREASED
  2. KESIMPTA [Suspect]
     Active Substance: OFATUMUMAB
     Indication: NASOPHARYNGITIS
     Route: 058

REACTIONS (5)
  - Chills [Recovered/Resolved]
  - Immobilisation syndrome [Recovered/Resolved]
  - Body temperature increased [Recovered/Resolved]
  - Heart rate increased [Recovered/Resolved]
  - Limb discomfort [Recovered/Resolved]
